FAERS Safety Report 17923976 (Version 1)
Quarter: 2020Q2

REPORT INFORMATION
  Report Type: Spontaneous
  Country: US (occurrence: US)
  Receive Date: 20200622
  Receipt Date: 20200622
  Transmission Date: 20200714
  Serious: No
  Sender: FDA-Public Use
  Company Number: None

PATIENT
  Age: 50 Year
  Sex: Female
  Weight: 72 kg

DRUGS (15)
  1. MEDICAL MARIJUANA [Concomitant]
     Active Substance: CANNABIS SATIVA SUBSP. INDICA TOP
  2. SYNTHROID [Concomitant]
     Active Substance: LEVOTHYROXINE SODIUM
  3. REPATHA [Concomitant]
     Active Substance: EVOLOCUMAB
  4. VITAMIN B [Concomitant]
     Active Substance: VITAMIN B
  5. CALCIUM [Concomitant]
     Active Substance: CALCIUM
  6. COUMADIN [Concomitant]
     Active Substance: WARFARIN SODIUM
  7. MULTIVITAMINS [Concomitant]
     Active Substance: VITAMINS
  8. PROBIOTIC [Concomitant]
     Active Substance: PROBIOTICS NOS
  9. VITAMIN C [Concomitant]
     Active Substance: ASCORBIC ACID
  10. LYRICA [Suspect]
     Active Substance: PREGABALIN
     Indication: FIBROMYALGIA
     Dosage: ?          QUANTITY:1 CAPSULE(S);?
     Route: 048
  11. COD LIVER OIL [Concomitant]
     Active Substance: COD LIVER OIL
  12. COLLAGEN [Concomitant]
     Active Substance: COLLAGEN
  13. PROTEIN POWDER [Concomitant]
  14. LYRICA [Suspect]
     Active Substance: PREGABALIN
     Indication: NEUROPATHY PERIPHERAL
     Dosage: ?          QUANTITY:1 CAPSULE(S);?
     Route: 048
  15. ATIVAN [Concomitant]
     Active Substance: LORAZEPAM

REACTIONS (12)
  - Memory impairment [None]
  - Back pain [None]
  - Ligament pain [None]
  - Toothache [None]
  - Dysphonia [None]
  - Hypoaesthesia [None]
  - Myalgia [None]
  - Joint noise [None]
  - Tongue paralysis [None]
  - Weight increased [None]
  - Speech disorder [None]
  - Musculoskeletal stiffness [None]
